FAERS Safety Report 5886080-5 (Version None)
Quarter: 2008Q3

REPORT INFORMATION
  Report Type: 
  Country: None (occurrence: None)
  Receive Date: 20080917
  Receipt Date: 20080909
  Transmission Date: 20090109
  Serious: Yes (Other)
  Sender: FDA-Public Use
  Company Number: GB-WYE-G02129708

PATIENT
  Sex: Female

DRUGS (3)
  1. RAPAMUNE [Suspect]
     Dosage: UNKNOWN
  2. PREDNISOLONE [Concomitant]
     Dosage: UNKNOWN
  3. MYCOPHENOLATE MOFETIL [Concomitant]
     Dosage: UNKNOWN

REACTIONS (4)
  - ACIDOSIS [None]
  - BLOOD POTASSIUM INCREASED [None]
  - BLOOD PRESSURE INCREASED [None]
  - PROTEINURIA [None]
